FAERS Safety Report 25554755 (Version 1)
Quarter: 2025Q3

REPORT INFORMATION
  Report Type: Spontaneous
  Country: CA (occurrence: CA)
  Receive Date: 20250715
  Receipt Date: 20250715
  Transmission Date: 20251020
  Serious: Yes (Death)
  Sender: FRESENIUS KABI
  Company Number: CA-FreseniusKabi-FK202509413

PATIENT
  Age: 68 Year
  Sex: Male

DRUGS (1)
  1. MIDAZOLAM HYDROCHLORIDE [Suspect]
     Active Substance: MIDAZOLAM HYDROCHLORIDE
     Indication: Product used for unknown indication
     Route: 042

REACTIONS (6)
  - Accidental death [Fatal]
  - Accidental overdose [Fatal]
  - Altered state of consciousness [Fatal]
  - Coma [Fatal]
  - Somnolence [Fatal]
  - Transcription medication error [Fatal]
